FAERS Safety Report 4520615-X (Version None)
Quarter: 2004Q4

REPORT INFORMATION
  Report Type: 
  Country: None (occurrence: None)
  Receive Date: 20041203
  Receipt Date: 20041122
  Transmission Date: 20050328
  Serious: Yes (Death)
  Sender: FDA-Public Use
  Company Number: 2004097247

PATIENT
  Age: 2 Year
  Sex: Female
  Weight: 20.4119 kg

DRUGS (1)
  1. BENADRYL [Suspect]
     Dosage: 30-35 TABS OR 2 BOTTLES OF LIQUID, ORAL
     Route: 048
     Dates: start: 20030101

REACTIONS (2)
  - OVERDOSE [None]
  - SUDDEN DEATH [None]
